FAERS Safety Report 4738630-X (Version None)
Quarter: 2005Q3

REPORT INFORMATION
  Report Type: 
  Country: None (occurrence: None)
  Receive Date: 20050802
  Receipt Date: 20050715
  Transmission Date: 20060218
  Serious: No
  Sender: FDA-Public Use
  Company Number: CART-295-M00USA

PATIENT
  Age: 34 Year
  Sex: Female
  Weight: 61.2356 kg

DRUGS (1)
  1. CARTICEL [Suspect]
     Indication: ARTHROPATHY
     Dosage: 1 NA ONCE IS
     Route: 035
     Dates: start: 19990826, end: 19990826

REACTIONS (6)
  - EXOSTOSIS [None]
  - GRAFT DELAMINATION [None]
  - JOINT ADHESION [None]
  - JOINT LOCK [None]
  - JOINT RANGE OF MOTION DECREASED [None]
  - PROCEDURAL PAIN [None]
